FAERS Safety Report 15939673 (Version 3)
Quarter: 2019Q1

REPORT INFORMATION
  Report Type: Spontaneous
  Country: AT (occurrence: AT)
  Receive Date: 20190208
  Receipt Date: 20190304
  Transmission Date: 20190417
  Serious: Yes (Hospitalization, Other)
  Sender: FDA-Public Use
  Company Number: AT-PFIZER INC-2019054719

PATIENT
  Age: 61 Year
  Sex: Female

DRUGS (3)
  1. ECALTA [Suspect]
     Active Substance: ANIDULAFUNGIN
     Indication: ASPERGILLUS INFECTION
     Dosage: 200 MG, 2 X
     Dates: start: 20180113, end: 20190124
  2. VORICONAZOLE. [Suspect]
     Active Substance: VORICONAZOLE
     Indication: ASPERGILLUS INFECTION
     Dosage: 400 MG, 2 X (FOR A LONG TIME)
     Route: 042
     Dates: start: 20181212, end: 20190109
  3. AMPHOTERICIN B. [Suspect]
     Active Substance: AMPHOTERICIN B
     Indication: ASPERGILLUS INFECTION
     Dosage: 50 MG, DAILY (FOR A VERY LONG TIME)
     Route: 055
     Dates: start: 20181220, end: 20190114

REACTIONS (4)
  - Renal disorder [Recovered/Resolved]
  - Confusional state [Recovered/Resolved]
  - Liver disorder [Recovered/Resolved]
  - Loss of consciousness [Recovered/Resolved]

NARRATIVE: CASE EVENT DATE: 2019
